FAERS Safety Report 21776744 (Version 2)
Quarter: 2023Q1

REPORT INFORMATION
  Report Type: Report from Study
  Country: US (occurrence: US)
  Receive Date: 20221226
  Receipt Date: 20230101
  Transmission Date: 20230417
  Serious: Yes (Death, Hospitalization, Other)
  Sender: FDA-Public Use
  Company Number: US-BoehringerIngelheim-2022-BI-209730

PATIENT
  Age: 77 Year
  Sex: Male

DRUGS (1)
  1. OFEV [Suspect]
     Active Substance: NINTEDANIB
     Indication: Idiopathic pulmonary fibrosis
     Route: 048
     Dates: start: 20220711

REACTIONS (5)
  - Pneumonia [Fatal]
  - Idiopathic pulmonary fibrosis [Fatal]
  - Aspiration [Unknown]
  - Epistaxis [Unknown]
  - Weight decreased [Unknown]

NARRATIVE: CASE EVENT DATE: 20221101
